FAERS Safety Report 7108698-4 (Version None)
Quarter: 2010Q4

REPORT INFORMATION
  Report Type: 
  Country: None (occurrence: None)
  Receive Date: 20101115
  Receipt Date: 20101115
  Transmission Date: 20110411
  Serious: Yes (Hospitalization)
  Sender: FDA-Public Use
  Company Number: None

PATIENT
  Age: 7 Year
  Sex: Female

DRUGS (2)
  1. AMOXICILLIN [Suspect]
     Indication: OROPHARYNGEAL PAIN
     Dosage: 500 MG PO
     Route: 048
     Dates: start: 20100525, end: 20100525
  2. AMOXICILLIN [Suspect]
     Indication: PYREXIA
     Dosage: 500 MG PO
     Route: 048
     Dates: start: 20100525, end: 20100525

REACTIONS (1)
  - STEVENS-JOHNSON SYNDROME [None]
